FAERS Safety Report 15815796 (Version 1)
Quarter: 2019Q1

REPORT INFORMATION
  Report Type: Spontaneous
  Country: US (occurrence: US)
  Receive Date: 20190113
  Receipt Date: 20190113
  Transmission Date: 20190417
  Serious: No
  Sender: FDA-Public Use
  Company Number: US-COOPERSURGICAL, INC.-US-2018CPS032258

PATIENT

DRUGS (1)
  1. PARAGARD T 380A [Suspect]
     Active Substance: COPPER
     Indication: CONTRACEPTION
     Dosage: UNK
     Route: 015
     Dates: start: 20150128, end: 20180612

REACTIONS (3)
  - Drug ineffective [Unknown]
  - Amenorrhoea [Not Recovered/Not Resolved]
  - Pregnancy with contraceptive device [Not Recovered/Not Resolved]

NARRATIVE: CASE EVENT DATE: 2018
